FAERS Safety Report 10581357 (Version 1)
Quarter: 2014Q4

REPORT INFORMATION
  Report Type: Spontaneous
  Country: US (occurrence: None)
  Receive Date: 20141110
  Receipt Date: 20141110
  Transmission Date: 20150529
  Serious: Yes (Other)
  Sender: FDA-Public Use
  Company Number: 001827003A

PATIENT
  Age: 12 Year
  Sex: Female

DRUGS (3)
  1. PROACTIV SOLUTION RENEWING CLEANSER [Suspect]
     Active Substance: BENZOYL PEROXIDE
     Indication: ACNE
     Dosage: TWICE DAILY DERMAL
     Dates: start: 20140320, end: 20140926
  2. PROACTIV SOLUTION REPAIRING TREATMENT [Suspect]
     Active Substance: BENZOYL PEROXIDE
     Indication: ACNE
     Dosage: TWICE DAILY DERMAL
     Dates: start: 20140320, end: 20140926
  3. PROACTIV SOLUTION DARK SPOT CORRECTOR [Suspect]
     Active Substance: HYDROQUINONE
     Indication: ACNE
     Dosage: TWICE DAILY DERMAL
     Dates: start: 20140320, end: 20140926

REACTIONS (5)
  - Papilloedema [None]
  - Brain oedema [None]
  - Hypersensitivity [None]
  - Erythema [None]
  - Vision blurred [None]

NARRATIVE: CASE EVENT DATE: 20140926
